FAERS Safety Report 20728130 (Version 3)
Quarter: 2023Q2

REPORT INFORMATION
  Report Type: Spontaneous
  Country: US (occurrence: US)
  Receive Date: 20220420
  Receipt Date: 20230505
  Transmission Date: 20230722
  Serious: Yes (Other)
  Sender: FDA-Public Use
  Company Number: US-BAUSCH-BL-2022-009274

PATIENT
  Age: 38 Year
  Sex: Female
  Weight: 56.296 kg

DRUGS (14)
  1. SOLODYN [Suspect]
     Active Substance: MINOCYCLINE HYDROCHLORIDE
     Indication: Acne
     Route: 048
     Dates: start: 20110106
  2. SOLODYN [Suspect]
     Active Substance: MINOCYCLINE HYDROCHLORIDE
     Dosage: BY MOUTH ONCE A DAY.
     Route: 048
     Dates: end: 201206
  3. SOLODYN [Suspect]
     Active Substance: MINOCYCLINE HYDROCHLORIDE
     Dosage: BY MOUTH ONCE A DAY. EXTENDED RELEASE
     Route: 048
  4. ALBUTEROL [Suspect]
     Active Substance: ALBUTEROL
     Indication: Product used for unknown indication
     Route: 065
  5. AZITHROMYCIN [Suspect]
     Active Substance: AZITHROMYCIN
     Indication: Product used for unknown indication
     Route: 065
  6. SPIRONOLACTONE [Suspect]
     Active Substance: SPIRONOLACTONE
     Indication: Product used for unknown indication
     Route: 065
  7. BENZOYL PEROXIDE [Concomitant]
     Active Substance: BENZOYL PEROXIDE
     Indication: Product used for unknown indication
     Dosage: CREAMY WASH,
     Route: 065
     Dates: start: 20100907
  8. PANOXYL [Concomitant]
     Active Substance: BENZOYL PEROXIDE
     Indication: Product used for unknown indication
     Dosage: CREAMY WASH
     Route: 065
  9. VELTIN [Concomitant]
     Active Substance: CLINDAMYCIN PHOSPHATE\TRETINOIN
     Indication: Product used for unknown indication
     Dosage: 1.2%/0.025%, EVERY NIGHT AT BEDTIME.
     Route: 065
  10. CERAVE [Concomitant]
     Indication: Product used for unknown indication
     Route: 065
  11. SYMBICORT [Concomitant]
     Active Substance: BUDESONIDE\FORMOTEROL FUMARATE DIHYDRATE
     Indication: Product used for unknown indication
     Dosage: 160/4.5 TO TAKE TWO PUFFS
  12. LATISSE [Concomitant]
     Active Substance: BIMATOPROST
     Indication: Product used for unknown indication
     Dosage: USE QHS AS DIRECTED
     Route: 061
     Dates: start: 20110616
  13. VENTOLIN HFA [Concomitant]
     Active Substance: ALBUTEROL SULFATE
     Indication: Product used for unknown indication
     Dosage: 2 PUFF EVERY 4 TO 6 HOURS
     Route: 055
     Dates: start: 20110616
  14. BREVOXYL [Concomitant]
     Active Substance: BENZOYL PEROXIDE
     Indication: Product used for unknown indication
     Route: 065

REACTIONS (38)
  - Autoimmune disorder [Unknown]
  - Dyspnoea at rest [Recovered/Resolved]
  - Pain in extremity [Unknown]
  - Endometrial ablation [Unknown]
  - Synovitis [Unknown]
  - Tenosynovitis [Unknown]
  - Dyspnoea exertional [Recovered/Resolved]
  - Parosmia [Unknown]
  - Dermal cyst [Unknown]
  - Joint swelling [Unknown]
  - Arthralgia [Recovered/Resolved]
  - Ocular hyperaemia [Unknown]
  - Headache [Unknown]
  - Cough [Recovered/Resolved]
  - Myalgia [Recovered/Resolved]
  - Liver function test increased [Recovered/Resolved]
  - White blood cell count decreased [Unknown]
  - Dry eye [Unknown]
  - Dry mouth [Unknown]
  - Dysphonia [Unknown]
  - Peripheral swelling [Unknown]
  - Hypoaesthesia [Unknown]
  - Paraesthesia [Unknown]
  - Chest pain [Unknown]
  - Wheezing [Recovered/Resolved]
  - Palpitations [Unknown]
  - Oropharyngeal pain [Unknown]
  - Thirst [Unknown]
  - Alopecia [Unknown]
  - Temperature intolerance [Unknown]
  - Abdominal pain [Unknown]
  - Abdominal distension [Unknown]
  - Flatulence [Unknown]
  - Dyspepsia [Unknown]
  - Nausea [Unknown]
  - Back pain [Unknown]
  - Ehlers-Danlos syndrome [Unknown]
  - Therapy interrupted [Unknown]

NARRATIVE: CASE EVENT DATE: 20110616
